FAERS Safety Report 5632098-7 (Version None)
Quarter: 2008Q1

REPORT INFORMATION
  Report Type: 
  Country: None (occurrence: None)
  Receive Date: 20080220
  Receipt Date: 20080215
  Transmission Date: 20080703
  Serious: Yes (Hospitalization)
  Sender: FDA-Public Use
  Company Number: B0508120A

PATIENT
  Age: 70 Year
  Sex: Male

DRUGS (3)
  1. VENTODISK [Suspect]
     Indication: DRUG USE FOR UNKNOWN INDICATION
     Dosage: 200MCG AT NIGHT
     Route: 055
     Dates: start: 20000101
  2. AMITRIPTYLINE HCL [Concomitant]
  3. RANITIDINE [Concomitant]

REACTIONS (2)
  - DYSURIA [None]
  - ORAL DISCOMFORT [None]
